FAERS Safety Report 7316248-2 (Version None)
Quarter: 2011Q1

REPORT INFORMATION
  Report Type: 
  Country: None (occurrence: None)
  Receive Date: 20110225
  Receipt Date: 20110216
  Transmission Date: 20110831
  Serious: Yes (Hospitalization)
  Sender: FDA-Public Use
  Company Number: FR-PFIZER INC-2009294011

PATIENT
  Age: 57 Year
  Sex: Female
  Weight: 67 kg

DRUGS (5)
  1. CYTARABINE [Suspect]
     Indication: ACUTE MYELOID LEUKAEMIA
     Dosage: 350 MG, TOTAL DAILY
     Route: 042
     Dates: start: 20090126, end: 20090202
  2. VFEND [Suspect]
     Indication: BRONCHOPULMONARY ASPERGILLOSIS
     Dosage: 800 MG, TOTAL DAILY
     Route: 048
     Dates: start: 20090303, end: 20090320
  3. CIFLOX [Concomitant]
     Dosage: UNK
     Route: 042
     Dates: start: 20090220, end: 20090101
  4. GEMTUZUMAB OZOGAMICIN [Suspect]
     Indication: ACUTE MYELOID LEUKAEMIA
     Dosage: 5 MG DAILY
     Route: 042
     Dates: start: 20090126, end: 20090202
  5. CERUBIDIN [Suspect]
     Indication: ACUTE MYELOID LEUKAEMIA
     Dosage: UNK
     Route: 042
     Dates: start: 20090126, end: 20090128

REACTIONS (3)
  - DEMYELINATION [None]
  - OPTIC NEUROPATHY [None]
  - ENCEPHALOPATHY [None]
